FAERS Safety Report 9056003 (Version 1)
Quarter: 2013Q1

REPORT INFORMATION
  Report Type: Spontaneous
  Country: IT (occurrence: IT)
  Receive Date: 20130205
  Receipt Date: 20130205
  Transmission Date: 20140127
  Serious: Yes (Other)
  Sender: FDA-Public Use
  Company Number: IT-ACCORD-016207

PATIENT
  Age: 58 Year
  Sex: Female
  Weight: 53 kg

DRUGS (7)
  1. IRINOTECAN HYDROCHLORIDE [Suspect]
     Indication: ADENOCARCINOMA OF COLON
     Route: 042
     Dates: start: 20121218, end: 20121219
  2. RANIDIL [Concomitant]
     Dates: start: 20121218, end: 20121219
  3. FLUOROURACIL [Suspect]
     Indication: PRODUCT USED FOR UNKNOWN INDICATION
     Route: 042
     Dates: start: 20121218, end: 20121219
  4. SOLDESAM [Concomitant]
     Dates: start: 20121218, end: 20121219
  5. CALCIUM LEVOFOLINATE [Concomitant]
     Dates: start: 20121218, end: 20121219
  6. ERBITUX [Suspect]
     Indication: PRODUCT USED FOR UNKNOWN INDICATION
     Route: 042
     Dates: start: 20121218, end: 20121219
  7. ONDANSETRON [Concomitant]
     Dates: start: 20121218, end: 20121219

REACTIONS (2)
  - Oedema peripheral [Unknown]
  - Pain in extremity [Unknown]
